FAERS Safety Report 15269630 (Version 2)
Quarter: 2018Q3

REPORT INFORMATION
  Report Type: Spontaneous
  Country: KR (occurrence: KR)
  Receive Date: 20180813
  Receipt Date: 20180813
  Transmission Date: 20181010
  Serious: Yes (Hospitalization, Other)
  Sender: FDA-Public Use
  Company Number: PHHY2018KR066114

PATIENT
  Sex: Male

DRUGS (9)
  1. ERYTHROPOIETIN [Suspect]
     Active Substance: ERYTHROPOIETIN
     Indication: ANAEMIA
     Route: 065
  2. NIFEDIPINE. [Suspect]
     Active Substance: NIFEDIPINE
     Indication: FOETAL EXPOSURE DURING PREGNANCY
     Dosage: MATERNAL DOSE: 120MG PER DAY
     Route: 064
  3. AMLODIPINE [Suspect]
     Active Substance: AMLODIPINE BESYLATE
     Indication: FOETAL EXPOSURE DURING PREGNANCY
     Dosage: MATERNAL DOSE: 5MG PER DAY
     Route: 064
  4. VALSARTAN. [Suspect]
     Active Substance: VALSARTAN
     Indication: FOETAL EXPOSURE DURING PREGNANCY
     Dosage: MATERNAL DOSE: 80MG PER DAY
     Route: 064
  5. FOLIC ACID. [Suspect]
     Active Substance: FOLIC ACID
     Indication: FOETAL EXPOSURE DURING PREGNANCY
     Dosage: MATERNAL DOSE: 4G PER DAY
     Route: 064
  6. EPOETIN BETA [Suspect]
     Active Substance: ERYTHROPOIETIN
     Indication: FOETAL EXPOSURE DURING PREGNANCY
     Dosage: MATERNAL DOSE: 200 MCG WAS INCREASED
     Route: 064
  7. ATOSIBAN [Suspect]
     Active Substance: ATOSIBAN
     Indication: FOETAL EXPOSURE DURING PREGNANCY
     Route: 064
  8. IRON [Suspect]
     Active Substance: IRON
     Indication: FOETAL EXPOSURE DURING PREGNANCY
     Dosage: MATERNAL DOSE: 4G PER DAY
     Route: 064
  9. ASPIRIN. [Suspect]
     Active Substance: ASPIRIN
     Indication: FOETAL EXPOSURE DURING PREGNANCY
     Dosage: MATERNAL DOSE: 100MG PER DAY
     Route: 064

REACTIONS (4)
  - Premature baby [Unknown]
  - Jaundice neonatal [Unknown]
  - Foetal exposure during pregnancy [Unknown]
  - Low birth weight baby [Unknown]
